FAERS Safety Report 16872584 (Version 1)
Quarter: 2019Q4

REPORT INFORMATION
  Report Type: Spontaneous
  Country: US (occurrence: US)
  Receive Date: 20191001
  Receipt Date: 20191001
  Transmission Date: 20200122
  Serious: No
  Sender: FDA-Public Use
  Company Number: US-MYLANLABS-2019M1087814

PATIENT
  Sex: Female
  Weight: 136 kg

DRUGS (2)
  1. BABY ASPIRIN [Concomitant]
     Active Substance: ASPIRIN
     Dosage: UNK
  2. TIOTIXENE [Suspect]
     Active Substance: THIOTHIXENE
     Indication: SCHIZOAFFECTIVE DISORDER
     Dosage: 30 MILLIGRAM, QD
     Route: 048
     Dates: start: 2016, end: 201903

REACTIONS (3)
  - Incoherent [Not Recovered/Not Resolved]
  - Treatment noncompliance [Not Recovered/Not Resolved]
  - Product availability issue [Not Recovered/Not Resolved]

NARRATIVE: CASE EVENT DATE: 2019
